FAERS Safety Report 18956191 (Version 2)
Quarter: 2021Q1

REPORT INFORMATION
  Report Type: Report from Study
  Country: US (occurrence: US)
  Receive Date: 20210302
  Receipt Date: 20210308
  Transmission Date: 20210420
  Serious: No
  Sender: FDA-Public Use
  Company Number: NVSC2021US041967

PATIENT
  Sex: Female

DRUGS (1)
  1. COSENTYX [Suspect]
     Active Substance: SECUKINUMAB
     Indication: PSORIATIC ARTHROPATHY
     Route: 058

REACTIONS (6)
  - Hypertension [Unknown]
  - Ill-defined disorder [Unknown]
  - Feeling abnormal [Unknown]
  - Blood glucose increased [Unknown]
  - Off label use [Unknown]
  - COVID-19 [Unknown]
